FAERS Safety Report 11817932 (Version 1)
Quarter: 2015Q4

REPORT INFORMATION
  Report Type: Spontaneous
  Country: US (occurrence: US)
  Receive Date: 20151210
  Receipt Date: 20151210
  Transmission Date: 20160305
  Serious: Yes (Hospitalization)
  Sender: FDA-Public Use
  Company Number: US-ROCHE-1675421

PATIENT
  Age: 53 Year
  Sex: Female
  Weight: 83.99 kg

DRUGS (3)
  1. KLONOPIN [Suspect]
     Active Substance: CLONAZEPAM
     Indication: PRODUCT USED FOR UNKNOWN INDICATION
     Route: 065
     Dates: end: 201411
  2. DEPAKOTE [Suspect]
     Active Substance: DIVALPROEX SODIUM
     Indication: BIPOLAR DISORDER
     Route: 048
     Dates: start: 201012
  3. PROZAC [Concomitant]
     Active Substance: FLUOXETINE HYDROCHLORIDE
     Indication: DEPRESSION

REACTIONS (7)
  - Suicidal ideation [Recovered/Resolved]
  - Weight increased [Unknown]
  - Increased appetite [Unknown]
  - Mania [Recovered/Resolved]
  - Rash [Unknown]
  - Alopecia [Unknown]
  - Arthritis [Unknown]

NARRATIVE: CASE EVENT DATE: 201311
